FAERS Safety Report 7511997-5 (Version None)
Quarter: 2011Q2

REPORT INFORMATION
  Report Type: 
  Country: None (occurrence: None)
  Receive Date: 20110531
  Receipt Date: 20110531
  Transmission Date: 20111010
  Serious: Yes (Other)
  Sender: FDA-Public Use
  Company Number: PHHO2009IN03922

PATIENT
  Age: 69 Year
  Sex: Male

DRUGS (2)
  1. AMLODIPINE [Concomitant]
     Indication: HYPERTENSION
  2. FORADIL [Suspect]
     Indication: CHRONIC OBSTRUCTIVE PULMONARY DISEASE
     Dosage: DOUBLE BLIND
     Dates: start: 20080215

REACTIONS (1)
  - LENTICULAR OPACITIES [None]
